FAERS Safety Report 23367908 (Version 1)
Quarter: 2024Q1

REPORT INFORMATION
  Report Type: Report from Study
  Country: US (occurrence: US)
  Receive Date: 20240104
  Receipt Date: 20240104
  Transmission Date: 20240409
  Serious: Yes (Hospitalization)
  Sender: FDA-Public Use
  Company Number: US-ABBVIE-5571774

PATIENT
  Age: 58 Year
  Sex: Male

DRUGS (1)
  1. IMBRUVICA [Suspect]
     Active Substance: IBRUTINIB
     Indication: Chronic lymphocytic leukaemia
     Route: 048
     Dates: start: 20220629

REACTIONS (5)
  - Type 2 diabetes mellitus [Unknown]
  - Saliva altered [Unknown]
  - Dry mouth [Unknown]
  - Tongue injury [Unknown]
  - Hypoacusis [Unknown]

NARRATIVE: CASE EVENT DATE: 20231201
